FAERS Safety Report 8334511-3 (Version None)
Quarter: 2012Q2

REPORT INFORMATION
  Report Type: 
  Country: None (occurrence: None)
  Receive Date: 20120503
  Receipt Date: 20120430
  Transmission Date: 20120825
  Serious: No
  Sender: FDA-Public Use
  Company Number: US-PFIZER INC-2012106325

PATIENT
  Sex: Female

DRUGS (1)
  1. ETHINYL ESTRADIOL AND NORGESTREL [Suspect]
     Dosage: UNK

REACTIONS (3)
  - MIGRAINE [None]
  - MENORRHAGIA [None]
  - FEELING ABNORMAL [None]
